FAERS Safety Report 11058754 (Version 1)
Quarter: 2015Q2

REPORT INFORMATION
  Report Type: Spontaneous
  Country: US (occurrence: US)
  Receive Date: 20150423
  Receipt Date: 20150423
  Transmission Date: 20150821
  Serious: Yes (Hospitalization)
  Sender: FDA-Public Use
  Company Number: US-CIPLA LTD.-2015US03152

PATIENT

DRUGS (3)
  1. LISINOPRIL. [Suspect]
     Active Substance: LISINOPRIL
     Dosage: 1000 MG
     Route: 065
  2. AMLODIPINE [Suspect]
     Active Substance: AMLODIPINE BESYLATE
     Dosage: 500 MG
     Route: 065
  3. HYDROCHLOROTHIAZIDE. [Suspect]
     Active Substance: HYDROCHLOROTHIAZIDE
     Dosage: 625 MG
     Route: 065

REACTIONS (13)
  - Respiratory failure [Unknown]
  - Hypotension [Unknown]
  - Hypokalaemia [Unknown]
  - Renal failure [Unknown]
  - Suicide attempt [Unknown]
  - Overdose [Unknown]
  - Shock [Unknown]
  - Staphylococcal bacteraemia [Unknown]
  - Pericardial effusion [Unknown]
  - Hypoxia [Unknown]
  - Tachycardia [Unknown]
  - Hypophosphataemia [Unknown]
  - Ejection fraction decreased [None]
